FAERS Safety Report 5718395-5 (Version None)
Quarter: 2008Q2

REPORT INFORMATION
  Report Type: 
  Country: None (occurrence: None)
  Receive Date: 20080425
  Receipt Date: 20071001
  Transmission Date: 20081010
  Serious: Yes (Other)
  Sender: FDA-Public Use
  Company Number: A0685987A

PATIENT
  Sex: Male

DRUGS (9)
  1. DEXEDRINE [Suspect]
     Indication: NARCOLEPSY
     Dosage: 30MG PER DAY
     Route: 048
     Dates: start: 20040101
  2. METHYLPHENIDATE HCL [Suspect]
     Indication: NARCOLEPSY
     Dosage: 60MG PER DAY
     Route: 048
     Dates: start: 20040101
  3. PROVIGIL [Suspect]
     Indication: NARCOLEPSY
     Dosage: 400MG PER DAY
     Route: 048
     Dates: start: 19990101
  4. AVALIDE [Concomitant]
     Dates: start: 20000101
  5. ATENOLOL [Concomitant]
     Dates: start: 20050101
  6. ABILIFY [Concomitant]
     Dates: start: 20060101
  7. XANAX [Concomitant]
     Dates: start: 20020101
  8. WELLBUTRIN [Concomitant]
     Dates: start: 19990101
  9. PROZAC [Concomitant]
     Dates: start: 20060101

REACTIONS (1)
  - PSYCHOTIC DISORDER [None]
